FAERS Safety Report 9312180 (Version 1)
Quarter: 2013Q2

REPORT INFORMATION
  Report Type: Spontaneous
  Country: IT (occurrence: IT)
  Receive Date: 20130528
  Receipt Date: 20130528
  Transmission Date: 20140414
  Serious: Yes (Other)
  Sender: FDA-Public Use
  Company Number: IT-BAXTER-2013BAX018593

PATIENT
  Age: 23 Year
  Sex: Female
  Weight: 48 kg

DRUGS (10)
  1. FLUCONAZOLO BAXTER [Suspect]
     Indication: SELF INJURIOUS BEHAVIOUR
     Route: 065
     Dates: start: 20110516
  2. IBUPROFENE [Suspect]
     Indication: SELF INJURIOUS BEHAVIOUR
     Route: 048
     Dates: start: 20110516
  3. CEFIXIMA [Suspect]
     Indication: SELF INJURIOUS BEHAVIOUR
     Route: 048
     Dates: start: 20110516
  4. MEBENDAZOLO [Suspect]
     Indication: SELF INJURIOUS BEHAVIOUR
     Route: 048
     Dates: start: 20110516
  5. DICLOFENAC [Suspect]
     Indication: SELF INJURIOUS BEHAVIOUR
     Route: 065
     Dates: start: 20110516
  6. BETAMETHASONE [Suspect]
     Indication: SELF INJURIOUS BEHAVIOUR
     Route: 048
     Dates: start: 20110516
  7. PARACETAMOLO [Suspect]
     Indication: SELF INJURIOUS BEHAVIOUR
     Route: 048
     Dates: start: 20110516
  8. THIOCOLCHICOSIDE [Suspect]
     Indication: SELF INJURIOUS BEHAVIOUR
     Route: 048
     Dates: start: 20110516
  9. CETIRIZINA [Suspect]
     Indication: SELF INJURIOUS BEHAVIOUR
     Route: 048
     Dates: start: 20110516
  10. NAPROXIN [Suspect]
     Indication: SELF INJURIOUS BEHAVIOUR
     Route: 048
     Dates: start: 20110516

REACTIONS (2)
  - Self injurious behaviour [Unknown]
  - Drug abuse [None]
